FAERS Safety Report 17172929 (Version 5)
Quarter: 2020Q4

REPORT INFORMATION
  Report Type: Spontaneous
  Country: HU (occurrence: HU)
  Receive Date: 20191218
  Receipt Date: 20201127
  Transmission Date: 20210113
  Serious: Yes (Other)
  Sender: FDA-Public Use
  Company Number: HU-GALDERMA-HU19073976

PATIENT
  Age: 59 Year
  Sex: Male

DRUGS (12)
  1. AMOXICILLIN. [Concomitant]
     Active Substance: AMOXICILLIN
     Indication: PRODUCT USED FOR UNKNOWN INDICATION
     Route: 065
  2. AMOXICILLIN. [Concomitant]
     Active Substance: AMOXICILLIN
     Route: 048
  3. TRAMETINIB [Concomitant]
     Active Substance: TRAMETINIB
     Indication: PRODUCT USED FOR UNKNOWN INDICATION
     Route: 065
     Dates: start: 20190313
  4. MEKINIST [Concomitant]
     Active Substance: TRAMETINIB DIMETHYL SULFOXIDE
     Indication: PRODUCT USED FOR UNKNOWN INDICATION
     Dosage: 1 DF, QD
     Route: 065
     Dates: end: 20190716
  5. TAFINLAR [Concomitant]
     Active Substance: DABRAFENIB MESYLATE
     Indication: PRODUCT USED FOR UNKNOWN INDICATION
     Dosage: 2 DF, QD
     Route: 065
     Dates: end: 20190716
  6. METRONIDAZOLE. [Suspect]
     Active Substance: METRONIDAZOLE
     Indication: PRODUCT USED FOR UNKNOWN INDICATION
     Route: 065
     Dates: start: 20190703
  7. DICLOFENAC [Concomitant]
     Active Substance: DICLOFENAC
     Indication: PRODUCT USED FOR UNKNOWN INDICATION
     Route: 065
     Dates: start: 20181019
  8. CEFTRIAXON [Concomitant]
     Active Substance: CEFTRIAXONE
     Indication: PRODUCT USED FOR UNKNOWN INDICATION
     Route: 065
     Dates: start: 20190703
  9. DABRAFENIB [Concomitant]
     Active Substance: DABRAFENIB
     Indication: PRODUCT USED FOR UNKNOWN INDICATION
     Route: 065
     Dates: start: 20190313
  10. TRAMETINIB [Concomitant]
     Active Substance: TRAMETINIB
     Route: 065
     Dates: start: 20190729
  11. DABRAFENIB [Concomitant]
     Active Substance: DABRAFENIB
     Dosage: 2 DF, BID
     Route: 065
     Dates: start: 20190729
  12. AMOXICILLIN. [Concomitant]
     Active Substance: AMOXICILLIN
     Route: 042

REACTIONS (23)
  - Pyrexia [Recovered/Resolved]
  - Gastrointestinal disorder [Recovered/Resolved]
  - C-reactive protein increased [Unknown]
  - Mucosal inflammation [Recovered/Resolved]
  - Renal cyst [Unknown]
  - Malaise [Recovered/Resolved]
  - Paraesthesia [Recovered/Resolved]
  - Vomiting [Recovered/Resolved]
  - Ileal perforation [Recovered/Resolved]
  - Secretion discharge [Recovered/Resolved]
  - Gastrointestinal inflammation [Recovered/Resolved]
  - Ulcer [Recovered/Resolved]
  - Dyspepsia [Recovered/Resolved]
  - Gastrointestinal wall thickening [Recovered/Resolved]
  - Tissue infiltration [Recovered/Resolved]
  - Abdominal pain [Recovered/Resolved]
  - Lymphadenopathy [Recovered/Resolved]
  - Blood lactate dehydrogenase increased [Unknown]
  - Weight decreased [Unknown]
  - General physical health deterioration [Recovered/Resolved]
  - Colitis ischaemic [Recovered/Resolved]
  - Hyperreflexia [Recovered/Resolved]
  - Procalcitonin increased [Unknown]

NARRATIVE: CASE EVENT DATE: 20190703
